FAERS Safety Report 7017766-7 (Version None)
Quarter: 2010Q3

REPORT INFORMATION
  Report Type: 
  Country: None (occurrence: None)
  Receive Date: 20100927
  Receipt Date: 20100927
  Transmission Date: 20110219
  Serious: Yes (Other)
  Sender: FDA-Public Use
  Company Number: None

PATIENT
  Age: 17 Year
  Sex: Female
  Weight: 83.9154 kg

DRUGS (5)
  1. TOPAMAX [Suspect]
     Indication: HEADACHE
     Dosage: 1-2 TABLETS ONCE A WEEK MAYBE PO
     Route: 048
     Dates: start: 20081104, end: 20090104
  2. TOPAMAX [Suspect]
     Indication: MIGRAINE
     Dosage: 1-2 TABLETS ONCE A WEEK MAYBE PO
     Route: 048
     Dates: start: 20081104, end: 20090104
  3. EPIDRIN NOT LISTED ON THE WAL-MART PHARMACY LABEL [Suspect]
     Indication: HEADACHE
     Dosage: 1 CAPSULE EVERY 2 HRS AS NEED 4 TIMES A DAY PO
     Route: 048
     Dates: start: 20081010, end: 20090104
  4. FIORICET [Concomitant]
  5. TRAZODONE HCL [Concomitant]

REACTIONS (7)
  - CONDITION AGGRAVATED [None]
  - DEPRESSION [None]
  - DRUG INEFFECTIVE [None]
  - FEELING ABNORMAL [None]
  - HEADACHE [None]
  - PAIN [None]
  - SUICIDAL IDEATION [None]
